FAERS Safety Report 11912441 (Version 1)
Quarter: 2016Q1

REPORT INFORMATION
  Report Type: Spontaneous
  Country: CA (occurrence: CA)
  Receive Date: 20160113
  Receipt Date: 20160113
  Transmission Date: 20160526
  Serious: Yes (Other)
  Sender: FDA-Public Use
  Company Number: CA-ROCHE-1693275

PATIENT
  Age: 31 Year
  Sex: Female

DRUGS (3)
  1. XOLAIR [Suspect]
     Active Substance: OMALIZUMAB
     Indication: ASTHMA
     Route: 058
     Dates: start: 20070501
  2. CETIRIZINE [Concomitant]
     Active Substance: CETIRIZINE HYDROCHLORIDE
  3. BRICANYL [Concomitant]
     Active Substance: TERBUTALINE SULFATE

REACTIONS (2)
  - Weight decreased [Unknown]
  - Asthma [Unknown]

NARRATIVE: CASE EVENT DATE: 20151215
